FAERS Safety Report 7740074 (Version 2)
Quarter: 2014Q4

REPORT INFORMATION
  Report Type: Spontaneous
  Country: US (occurrence: US)
  Receive Date: 20101227
  Receipt Date: 20141219
  Transmission Date: 20150529
  Serious: Yes (Other)
  Sender: FDA-Public Use
  Company Number: US-ROCHE-748342

PATIENT
  Sex: Female

DRUGS (3)
  1. BONIVA [Suspect]
     Active Substance: IBANDRONATE SODIUM
     Route: 065
  2. BONIVA [Suspect]
     Active Substance: IBANDRONATE SODIUM
     Indication: OSTEOPOROSIS
     Route: 065
     Dates: start: 2004, end: 200802
  3. FOSAMAX [Suspect]
     Active Substance: ALENDRONATE SODIUM
     Indication: OSTEOPOROSIS
     Route: 065
     Dates: start: 1995, end: 2004

REACTIONS (3)
  - Femur fracture [Unknown]
  - Low turnover osteopathy [Unknown]
  - Osteonecrosis of jaw [Unknown]
